FAERS Safety Report 8716929 (Version 2)
Quarter: 2012Q4

REPORT INFORMATION
  Report Type: 
  Country: FR (occurrence: FR)
  Receive Date: 20120810
  Receipt Date: 20121126
  Transmission Date: 20130627
  Serious: Yes (Hospitalization, Other)
  Sender: FDA-Public Use
  Company Number: FR-JNJFOC-20120801804

PATIENT
  Age: 27 Year
  Sex: Female

DRUGS (4)
  1. REMICADE [Suspect]
     Indication: CROHN^S DISEASE
     Route: 042
     Dates: start: 20110307, end: 20111104
  2. REMICADE [Suspect]
     Indication: CROHN^S DISEASE
     Route: 042
     Dates: start: 20111104, end: 20111104
  3. REMICADE [Suspect]
     Indication: COELIAC DISEASE
     Route: 042
     Dates: start: 20110307, end: 20111104
  4. REMICADE [Suspect]
     Indication: COELIAC DISEASE
     Route: 042
     Dates: start: 20111104, end: 20111104

REACTIONS (4)
  - Cholangitis [Recovered/Resolved]
  - Lung disorder [Unknown]
  - Pertussis [Unknown]
  - Cholestasis [Unknown]
